FAERS Safety Report 8514236-1 (Version None)
Quarter: 2012Q3

REPORT INFORMATION
  Report Type: 
  Country: None (occurrence: None)
  Receive Date: 20120717
  Receipt Date: 20120702
  Transmission Date: 20120928
  Serious: Yes (Death, Hospitalization, Other)
  Sender: FDA-Public Use
  Company Number: DE-009507513-2012SP022204

PATIENT

DRUGS (11)
  1. REBETOL [Suspect]
     Dosage: 800 MG, QD
     Route: 048
     Dates: start: 20111028
  2. PEG-INTRON [Suspect]
     Dosage: UNK
     Dates: start: 20111028, end: 20111207
  3. OPIPRAMOL HYDROCHLORIDE [Concomitant]
     Dosage: 1/2 1/2 1
  4. PEG-INTRON [Suspect]
     Indication: HEPATITIS C
     Dosage: UNK
     Dates: start: 20100820, end: 20101129
  5. CITALOPRAM HYDROBROMIDE [Concomitant]
     Dosage: 50 MG, QD
  6. VICTRELIS [Suspect]
     Indication: HEPATITIS C
     Dosage: 2400 MG, QD
     Route: 048
     Dates: start: 20111123
  7. PEG-INTRON [Suspect]
     Dosage: 80 A?G, QW
     Route: 058
     Dates: start: 20111201
  8. REBETOL [Suspect]
     Dosage: 600 MG, QD
     Route: 048
  9. PEG-INTRON [Suspect]
     Dosage: 64 A?G, QW
     Route: 058
  10. REBETOL [Suspect]
     Indication: HEPATITIS C
     Dosage: UNK
     Dates: start: 20100820, end: 20101129
  11. AMITRIPTYLINE HCL [Concomitant]
     Dosage: 50 MG, QD

REACTIONS (11)
  - THROMBOCYTOPENIA [None]
  - APHTHOUS STOMATITIS [None]
  - AGGRESSION [None]
  - MOOD ALTERED [None]
  - LEUKOPENIA [None]
  - MIDDLE INSOMNIA [None]
  - PRURITUS [None]
  - SYNCOPE [None]
  - STOMATITIS [None]
  - ANAEMIA [None]
  - NO THERAPEUTIC RESPONSE [None]
